FAERS Safety Report 9145723 (Version 1)
Quarter: 2013Q1

REPORT INFORMATION
  Report Type: Spontaneous
  Country: US (occurrence: US)
  Receive Date: 20130307
  Receipt Date: 20130307
  Transmission Date: 20140127
  Serious: No
  Sender: FDA-Public Use
  Company Number: US-PFIZER INC-2013075018

PATIENT
  Sex: Female

DRUGS (3)
  1. PREMPRO [Suspect]
     Indication: HOT FLUSH
     Dosage: 0.45/1.5 MG, UNK
     Route: 048
  2. PREMPRO [Suspect]
     Dosage: 0.45/.1.5 MG, ALTERNATE DAY
     Route: 048
  3. ESTROGENS [Concomitant]
     Dosage: UNK

REACTIONS (5)
  - Insomnia [Unknown]
  - Abdominal pain upper [Unknown]
  - Mood swings [Unknown]
  - Inappropriate schedule of drug administration [Unknown]
  - Drug ineffective [Unknown]
